FAERS Safety Report 4578366-1 (Version None)
Quarter: 2005Q1

REPORT INFORMATION
  Report Type: 
  Country: None (occurrence: None)
  Receive Date: 20050202
  Receipt Date: 20050202
  Transmission Date: 20050727
  Serious: Yes (Hospitalization)
  Sender: FDA-Public Use
  Company Number: None

PATIENT
  Age: 40 Year
  Sex: Male
  Weight: 66 kg

DRUGS (5)
  1. CLOPIDOGREL (PLAVIX) 75MG PO Q DAILY [Suspect]
     Indication: PROPHYLAXIS
     Dosage: 75MG PO Q DAILY
     Route: 048
     Dates: start: 20040118, end: 20040125
  2. CLOPIDOGREL (PLAVIX) 75MG PO Q DAILY [Suspect]
     Indication: STENT PLACEMENT
     Dosage: 75MG PO Q DAILY
     Route: 048
     Dates: start: 20040118, end: 20040125
  3. ASPIRIN [Concomitant]
  4. TOPROL-XL [Concomitant]
  5. TICLID [Concomitant]

REACTIONS (6)
  - BLISTER [None]
  - GENERALISED ERYTHEMA [None]
  - HYPERTENSION [None]
  - LIVER FUNCTION TEST ABNORMAL [None]
  - MYOCARDIAL INFARCTION [None]
  - RASH [None]
